FAERS Safety Report 8558364-3 (Version None)
Quarter: 2012Q3

REPORT INFORMATION
  Report Type: 
  Country: None (occurrence: None)
  Receive Date: 20120727
  Receipt Date: 20120727
  Transmission Date: 20120928
  Serious: No
  Sender: FDA-Public Use
  Company Number: None

PATIENT
  Sex: Female

DRUGS (1)
  1. FORTEO [Suspect]
     Dosage: 10 MCG, DAILY, SQ
     Dates: start: 20120430

REACTIONS (4)
  - TINNITUS [None]
  - CONTUSION [None]
  - EYE PAIN [None]
  - EYE IRRITATION [None]
